FAERS Safety Report 13805006 (Version 12)
Quarter: 2021Q1

REPORT INFORMATION
  Report Type: Spontaneous
  Country: US (occurrence: US)
  Receive Date: 20170728
  Receipt Date: 20210309
  Transmission Date: 20210419
  Serious: Yes (Other)
  Sender: FDA-Public Use
  Company Number: US-PFIZER INC-2017324041

PATIENT
  Age: 38 Year
  Sex: Female
  Weight: 82 kg

DRUGS (3)
  1. LYRICA [Suspect]
     Active Substance: PREGABALIN
     Dosage: 450 MG, DAILY (3 QD (ONCE A DAY))
     Route: 048
  2. LYRICA [Suspect]
     Active Substance: PREGABALIN
     Indication: LYME DISEASE
     Dosage: 450 MG (150 MG, 3 CAPSULES), ONCE A DAY
     Route: 048
  3. LYRICA [Suspect]
     Active Substance: PREGABALIN
     Indication: PAIN
     Dosage: 450 MG, DAILY (1 CAPSULE IN THE MORNING, 2 CAPSULES AT NIGHT BY MOUTH)
     Route: 048

REACTIONS (6)
  - Nervousness [Unknown]
  - Hypokinesia [Unknown]
  - Myocardial infarction [Unknown]
  - Off label use [Unknown]
  - Drug dependence [Unknown]
  - Concussion [Unknown]
